FAERS Safety Report 5019884-1 (Version None)
Quarter: 2006Q2

REPORT INFORMATION
  Report Type: 
  Country: None (occurrence: None)
  Receive Date: 20060607
  Receipt Date: 20060530
  Transmission Date: 20061013
  Serious: Yes (Other)
  Sender: FDA-Public Use
  Company Number: PHBS2006TR08109

PATIENT
  Age: 41 Year
  Sex: Female

DRUGS (2)
  1. ANABOLIC STEROIDS [Concomitant]
     Indication: MYOPATHY
  2. ZELMAC [Suspect]
     Indication: IRRITABLE BOWEL SYNDROME
     Dosage: UNK, UNK
     Dates: start: 20051201, end: 20060201

REACTIONS (3)
  - CONDITION AGGRAVATED [None]
  - MUSCULAR DYSTROPHY [None]
  - MYOPATHY [None]
